FAERS Safety Report 6430010-4 (Version None)
Quarter: 2009Q4

REPORT INFORMATION
  Report Type: 
  Country: None (occurrence: None)
  Receive Date: 20091104
  Receipt Date: 20091104
  Transmission Date: 20100525
  Serious: Yes (Life-Threatening, Hospitalization)
  Sender: FDA-Public Use
  Company Number: None

PATIENT
  Age: 5 Year
  Sex: Male
  Weight: 18.5975 kg

DRUGS (2)
  1. PROCHLORPERAZINE [Suspect]
     Indication: NAUSEA
     Dosage: 1/2 SUPPOSITORIES EVERY 6 HOURS RECTAL
     Route: 054
     Dates: start: 20091028, end: 20091029
  2. PROCHLORPERAZINE [Suspect]
     Indication: VOMITING
     Dosage: 1/2 SUPPOSITORIES EVERY 6 HOURS RECTAL
     Route: 054
     Dates: start: 20091028, end: 20091029

REACTIONS (10)
  - APHASIA [None]
  - DEHYDRATION [None]
  - DYSPHAGIA [None]
  - HEADACHE [None]
  - NAUSEA [None]
  - NECK PAIN [None]
  - PNEUMONIA [None]
  - TREMOR [None]
  - UNRESPONSIVE TO STIMULI [None]
  - VOMITING [None]
